FAERS Safety Report 7230947-2 (Version None)
Quarter: 2011Q1

REPORT INFORMATION
  Report Type: 
  Country: None (occurrence: None)
  Receive Date: 20110118
  Receipt Date: 20110107
  Transmission Date: 20110831
  Serious: Yes (Death)
  Sender: FDA-Public Use
  Company Number: BE-ROCHE-743958

PATIENT
  Sex: Female
  Weight: 84.2 kg

DRUGS (8)
  1. BEVACIZUMAB [Suspect]
     Dosage: 10 UNK, 2/MONTH
     Route: 042
     Dates: start: 20091223
  2. PACLITAXEL [Suspect]
     Dosage: 90 UNK, 3/MONTH
     Route: 042
     Dates: start: 20091125, end: 20100203
  3. EMCONCOR [Concomitant]
     Indication: PRODUCT USED FOR UNKNOWN INDICATION
     Dosage: 2.5 MG, QD
  4. TRITACE [Concomitant]
     Indication: PRODUCT USED FOR UNKNOWN INDICATION
     Dosage: 2.5 MG, QD
  5. LASIX [Concomitant]
     Indication: PRODUCT USED FOR UNKNOWN INDICATION
     Dosage: 40 MG, 3/WEEK
  6. SERLAIN [Concomitant]
     Dosage: 50 MG, QD
  7. GDC-0941 [Suspect]
     Dosage: 60 UNK, QD
     Route: 048
     Dates: start: 20091124, end: 20100209
  8. INNOHEP [Concomitant]
     Indication: PRODUCT USED FOR UNKNOWN INDICATION
     Dosage: 14000 IU, QD
     Route: 058

REACTIONS (1)
  - LEFT VENTRICULAR DYSFUNCTION [None]
